FAERS Safety Report 7153760-3 (Version None)
Quarter: 2010Q4

REPORT INFORMATION
  Report Type: 
  Country: None (occurrence: None)
  Receive Date: 20101213
  Receipt Date: 20101025
  Transmission Date: 20110411
  Serious: No
  Sender: FDA-Public Use
  Company Number: US-ABBOTT-10P-163-0681145-00

PATIENT
  Weight: 81.72 kg

DRUGS (12)
  1. MERIDIA [Suspect]
     Indication: WEIGHT DECREASED
     Dates: start: 20091201, end: 20091201
  2. MERIDIA [Suspect]
     Dates: start: 20091201, end: 20091201
  3. LEVOTHYROXINE [Concomitant]
     Indication: HYPOTHYROIDISM
  4. VESICARE [Concomitant]
     Indication: URINARY INCONTINENCE
  5. PRAVASTATIN [Concomitant]
     Indication: BLOOD CHOLESTEROL INCREASED
  6. AVISTA [Concomitant]
     Indication: PRODUCT USED FOR UNKNOWN INDICATION
  7. NITROFURANTOIN [Concomitant]
     Indication: CYSTITIS
  8. LISINOPRIL [Concomitant]
     Indication: HYPERTENSION
  9. ASCORBIC ACID [Concomitant]
     Indication: VITAMIN SUPPLEMENTATION
  10. VITAMIN E [Concomitant]
     Indication: VITAMIN SUPPLEMENTATION
  11. MULTIPLE VITAMINS [Concomitant]
     Indication: VITAMIN SUPPLEMENTATION
  12. NEXIUM [Concomitant]
     Indication: GASTROOESOPHAGEAL REFLUX DISEASE

REACTIONS (1)
  - FEELING ABNORMAL [None]
